FAERS Safety Report 6603411-9 (Version None)
Quarter: 2010Q1

REPORT INFORMATION
  Report Type: 
  Country: None (occurrence: None)
  Receive Date: 20100226
  Receipt Date: 20090610
  Transmission Date: 20100710
  Serious: No
  Sender: FDA-Public Use
  Company Number: A0781531A

PATIENT
  Age: 55 Year
  Sex: Female
  Weight: 80.5 kg

DRUGS (4)
  1. VALTREX [Suspect]
     Indication: GENITAL RASH
     Dosage: 500MG PER DAY
     Route: 048
     Dates: start: 20040101
  2. VITAMIN D [Concomitant]
  3. CALCIUM [Concomitant]
  4. M.V.I. [Concomitant]

REACTIONS (4)
  - DRUG INEFFECTIVE [None]
  - OFF LABEL USE [None]
  - RASH [None]
  - RASH PRURITIC [None]
